FAERS Safety Report 7002090-9 (Version None)
Quarter: 2010Q3

REPORT INFORMATION
  Report Type: 
  Country: None (occurrence: None)
  Receive Date: 20100920
  Receipt Date: 20100311
  Transmission Date: 20110219
  Serious: Yes (Other)
  Sender: FDA-Public Use
  Company Number: US-ASTRAZENECA-2009UW20583

PATIENT
  Sex: Female

DRUGS (7)
  1. SEROQUEL [Suspect]
     Dosage: 25 MG 1-2 HS
     Route: 048
     Dates: start: 20030130
  2. ORTHO-NOVUM 7/7/7-21 [Concomitant]
     Dosage: 28 S ONE DAILY
     Route: 048
     Dates: start: 20020928
  3. SYNTHROID [Concomitant]
     Route: 048
     Dates: start: 20030124
  4. PAXIL [Concomitant]
     Route: 048
     Dates: start: 20030130
  5. FLUPHENAZINE [Concomitant]
     Dosage: 2.5 MG 2 HS
     Route: 048
     Dates: start: 20030130
  6. CLONAZEPAM [Concomitant]
     Dosage: 0.5 MG 3 HS
     Route: 048
     Dates: start: 20030130
  7. LORATADINE [Concomitant]
     Route: 048
     Dates: start: 20030204

REACTIONS (3)
  - DIABETES MELLITUS [None]
  - KETOACIDOSIS [None]
  - PANCREATITIS [None]
